FAERS Safety Report 6987351-1 (Version None)
Quarter: 2010Q3

REPORT INFORMATION
  Report Type: 
  Country: None (occurrence: None)
  Receive Date: 20100916
  Receipt Date: 20100908
  Transmission Date: 20110219
  Serious: Yes (Hospitalization)
  Sender: FDA-Public Use
  Company Number: BR-BAXTER-2010BH022108

PATIENT
  Age: 78 Year
  Sex: Male
  Weight: 74 kg

DRUGS (4)
  1. DIANEAL [Suspect]
     Indication: PERITONEAL DIALYSIS
     Route: 033
     Dates: start: 20090401
  2. RIVOTRIL [Concomitant]
     Indication: PRODUCT USED FOR UNKNOWN INDICATION
     Route: 048
     Dates: start: 20100301
  3. ADALAT [Concomitant]
     Indication: HYPERTENSION
     Route: 048
  4. CAPOTEN [Concomitant]
     Indication: HYPERTENSION
     Route: 048

REACTIONS (7)
  - BLOOD CREATININE INCREASED [None]
  - DECREASED APPETITE [None]
  - DEPRESSION [None]
  - PERITONITIS [None]
  - SOMNOLENCE [None]
  - SWELLING [None]
  - VIRAL INFECTION [None]
